FAERS Safety Report 5425837-1 (Version None)
Quarter: 2007Q3

REPORT INFORMATION
  Report Type: 
  Country: None (occurrence: None)
  Receive Date: 20070824
  Receipt Date: 20070824
  Transmission Date: 20080115
  Serious: Yes (Life-Threatening, Hospitalization, Disabling, Congenital Anomaly, Other)
  Sender: FDA-Public Use
  Company Number: None

PATIENT
  Sex: Female
  Weight: 124.7392 kg

DRUGS (1)
  1. SEROQUEL [Suspect]
     Indication: SLEEP DISORDER
     Dosage: 600MG 1 NIGHTLY ORAL
     Route: 048
     Dates: start: 20000801, end: 20041101

REACTIONS (15)
  - ABDOMINAL STRANGULATED HERNIA [None]
  - ABORTION INCOMPLETE [None]
  - DIARRHOEA [None]
  - DRUG EXPOSURE DURING PREGNANCY [None]
  - GALLBLADDER DISORDER [None]
  - MALAISE [None]
  - NAUSEA [None]
  - NERVE INJURY [None]
  - NEUROPATHY PERIPHERAL [None]
  - PREGNANCY [None]
  - STOMACH DISCOMFORT [None]
  - THYROID DISORDER [None]
  - TYPE 2 DIABETES MELLITUS [None]
  - WEIGHT INCREASED [None]
  - WHEELCHAIR USER [None]
